FAERS Safety Report 10085065 (Version 1)
Quarter: 2014Q2

REPORT INFORMATION
  Report Type: Spontaneous
  Country: US (occurrence: US)
  Receive Date: 20140417
  Receipt Date: 20140417
  Transmission Date: 20141212
  Serious: Yes (Hospitalization)
  Sender: FDA-Public Use
  Company Number: US-LDSO_CANADA-163-21880-14041426

PATIENT
  Age: 73 Year
  Sex: Female
  Weight: 50.39 kg

DRUGS (9)
  1. REVLIMID [Suspect]
     Indication: PLASMA CELL MYELOMA
     Dosage: 25 MILLIGRAM
     Route: 048
     Dates: start: 20131211, end: 20140405
  2. REVLIMID [Suspect]
     Dosage: 10 MILLIGRAM
     Route: 048
     Dates: start: 201404
  3. PRADAXA [Concomitant]
     Indication: ANTICOAGULANT THERAPY
     Route: 065
  4. SOTALOL HCL [Concomitant]
     Indication: CARDIAC DISORDER
     Route: 065
  5. ZOMETA [Concomitant]
     Indication: BONE DISORDER
     Dosage: 4MG / 5ML
     Route: 065
  6. ALBUTEROL SULFATE [Concomitant]
     Indication: ASTHMA
     Dosage: 2.5MG / ML
     Route: 055
  7. POTASSIUM [Concomitant]
     Indication: VITAMIN SUPPLEMENTATION
     Route: 065
  8. FERROUS SULFATE [Concomitant]
     Indication: VITAMIN SUPPLEMENTATION
     Route: 065
  9. CALCIUM +D [Concomitant]
     Indication: VITAMIN SUPPLEMENTATION
     Route: 065

REACTIONS (3)
  - Blood potassium abnormal [Unknown]
  - Diarrhoea [Recovered/Resolved]
  - Dehydration [Unknown]
